FAERS Safety Report 11327462 (Version 1)
Quarter: 2015Q3

REPORT INFORMATION
  Report Type: Spontaneous
  Country: US (occurrence: None)
  Receive Date: 20150730
  Receipt Date: 20150730
  Transmission Date: 20151125
  Serious: No
  Sender: FDA-Public Use
  Company Number: None

PATIENT
  Age: 54 Year
  Sex: Female

DRUGS (18)
  1. CITALOPRAM [Concomitant]
     Active Substance: CITALOPRAM HYDROBROMIDE
  2. HYDROMORPHONE [Concomitant]
     Active Substance: HYDROMORPHONE
  3. YRSIDUAK [Concomitant]
  4. ACETAMINOPHEN. [Concomitant]
     Active Substance: ACETAMINOPHEN
  5. SULFAMETHOXAZOLE-TRIMETHOPRIM [Suspect]
     Active Substance: SULFAMETHOXAZOLE\TRIMETHOPRIM
     Route: 048
  6. CEFTRIAXONE. [Concomitant]
     Active Substance: CEFTRIAXONE
  7. TACROLIMUS. [Suspect]
     Active Substance: TACROLIMUS
     Indication: IMMUNOSUPPRESSION
     Dosage: THERAPY DATE ?12/19/15- NOT DISCONTINUED
     Route: 048
  8. FUROSEMIDE. [Concomitant]
     Active Substance: FUROSEMIDE
  9. AMLODIPINE [Concomitant]
     Active Substance: AMLODIPINE BESYLATE
  10. LANSOPRAZOLE. [Concomitant]
     Active Substance: LANSOPRAZOLE
  11. NYSTATIN. [Concomitant]
     Active Substance: NYSTATIN
  12. INSULIN ASPART [Concomitant]
     Active Substance: INSULIN ASPART
  13. METRONIDAZOLE. [Concomitant]
     Active Substance: METRONIDAZOLE
  14. CARVEDILOL. [Concomitant]
     Active Substance: CARVEDILOL
  15. OXYCODONE [Concomitant]
     Active Substance: OXYCODONE
  16. VALGANCICLOVIR [Concomitant]
     Active Substance: VALGANCICLOVIR
  17. LINEZOLID. [Concomitant]
     Active Substance: LINEZOLID
  18. METHYLPREDNISOLONE. [Concomitant]
     Active Substance: METHYLPREDNISOLONE

REACTIONS (1)
  - Blood potassium increased [None]

NARRATIVE: CASE EVENT DATE: 20150215
